FAERS Safety Report 10565167 (Version 2)
Quarter: 2015Q1

REPORT INFORMATION
  Report Type: Spontaneous
  Country: GB (occurrence: None)
  Receive Date: 20141103
  Receipt Date: 20150121
  Transmission Date: 20150720
  Serious: Yes (Hospitalization)
  Sender: FDA-Public Use
  Company Number: 2014MPI01352

PATIENT
  Age: 26 Year
  Sex: Female
  Weight: 93.4 kg

DRUGS (1)
  1. ADCETRIS [Suspect]
     Active Substance: BRENTUXIMAB VEDOTIN
     Indication: HODGKIN^S DISEASE
     Route: 042
     Dates: start: 20140718, end: 20140923

REACTIONS (3)
  - Epstein-Barr viraemia [None]
  - C-reactive protein increased [None]
  - Pyrexia [None]

NARRATIVE: CASE EVENT DATE: 20140924
